FAERS Safety Report 9911395 (Version 1)
Quarter: 2014Q1

REPORT INFORMATION
  Report Type: Spontaneous
  Country: US (occurrence: US)
  Receive Date: 20140219
  Receipt Date: 20140219
  Transmission Date: 20141002
  Serious: Yes (Hospitalization)
  Sender: FDA-Public Use
  Company Number: PHHY2014US017774

PATIENT
  Age: 72 Year
  Sex: Male

DRUGS (9)
  1. LISINOPRIL [Suspect]
  2. ACETYLSALICYLIC ACID [Suspect]
  3. LITHIUM CARBONATE [Suspect]
     Indication: BIPOLAR DISORDER
     Dosage: 450 MG, QHS
  4. LITHIUM CARBONATE [Suspect]
     Dosage: 300 MG, DAILY
  5. DULOXETINE [Concomitant]
  6. OLANZAPINE [Concomitant]
  7. PAROXETINE [Concomitant]
  8. METFORMIN [Concomitant]
  9. ARIPIPRAZOLE [Concomitant]

REACTIONS (8)
  - Toxicity to various agents [Recovered/Resolved]
  - Hypothermia [Recovered/Resolved]
  - Bradycardia [Recovered/Resolved]
  - Apnoea [Recovered/Resolved]
  - Hypotension [Recovered/Resolved]
  - Hyponatraemia [Recovered/Resolved]
  - Mental status changes [Recovered/Resolved]
  - Blood creatinine increased [Unknown]
